FAERS Safety Report 9444126 (Version 2)
Quarter: 2013Q4

REPORT INFORMATION
  Report Type: Spontaneous
  Country: GB (occurrence: GB)
  Receive Date: 20130807
  Receipt Date: 20131105
  Transmission Date: 20140711
  Serious: Yes (Death, Other)
  Sender: FDA-Public Use
  Company Number: GB-ROCHE-1257604

PATIENT
  Age: 67 Year
  Sex: Male
  Weight: 130 kg

DRUGS (3)
  1. XELODA [Suspect]
     Indication: OESOPHAGEAL ADENOCARCINOMA METASTATIC
     Route: 048
     Dates: start: 20130604, end: 20130701
  2. EPIRUBICIN [Concomitant]
  3. CISPLATIN [Concomitant]

REACTIONS (4)
  - Renal failure acute [Fatal]
  - Alopecia [Not Recovered/Not Resolved]
  - Intestinal dilatation [Not Recovered/Not Resolved]
  - Blood bilirubin increased [Not Recovered/Not Resolved]
